FAERS Safety Report 7554731-5 (Version None)
Quarter: 2011Q2

REPORT INFORMATION
  Report Type: 
  Country: None (occurrence: None)
  Receive Date: 20110617
  Receipt Date: 20110613
  Transmission Date: 20111010
  Serious: Yes (Other)
  Sender: FDA-Public Use
  Company Number: US-TEVA-286108USA

PATIENT
  Sex: Female

DRUGS (14)
  1. NEBIVOLOL HCL [Suspect]
     Indication: HYPERTENSION
     Dosage: 5 MILLIGRAM;
     Route: 048
     Dates: start: 20100928, end: 20110511
  2. NEBIVOLOL HCL [Suspect]
     Dosage: 5 MILLIGRAM;
     Route: 048
     Dates: start: 20110528
  3. DYAZIDE [Concomitant]
     Indication: POLYURIA
  4. CALCIUM CARBONATE [Concomitant]
  5. FERROUS SULFATE TAB [Concomitant]
  6. ZEBETA [Suspect]
     Indication: HYPERTENSION
     Dates: start: 20110512, end: 20110527
  7. BYETTA [Concomitant]
  8. GLIPIZIDE [Concomitant]
     Indication: DIABETES MELLITUS
  9. ACETYL SALICYLIC ACID COMPOUND TAB [Concomitant]
  10. LOSARTAN POTASSIUM [Concomitant]
     Indication: HYPERTENSION
  11. METFORMIN HCL [Concomitant]
     Indication: DIABETES MELLITUS
  12. CLONIDINE [Concomitant]
     Indication: HYPERTENSION
  13. ATORVASTATIN CALCIUM [Concomitant]
     Indication: BLOOD CHOLESTEROL INCREASED
  14. ERGOCALCIFEROL [Concomitant]

REACTIONS (6)
  - GLYCOSYLATED HAEMOGLOBIN INCREASED [None]
  - MUSCULOSKELETAL STIFFNESS [None]
  - OEDEMA PERIPHERAL [None]
  - HYPOAESTHESIA [None]
  - BLOOD GLUCOSE INCREASED [None]
  - PRURITUS [None]
